FAERS Safety Report 9844769 (Version 1)
Quarter: 2014Q1

REPORT INFORMATION
  Report Type: Spontaneous
  Country: IT (occurrence: None)
  Receive Date: 20140122
  Receipt Date: 20140122
  Transmission Date: 20141002
  Serious: Yes (Hospitalization)
  Sender: FDA-Public Use
  Company Number: 2014AP000265

PATIENT
  Age: 77 Year
  Sex: Male

DRUGS (8)
  1. ATORVASTATIN [Suspect]
     Indication: HYPERCHOLESTEROLAEMIA
     Route: 048
  2. ACETYLSALICYLIC ACID [Concomitant]
  3. OLMESARTAN MEDOXOMIL(OLMESARTAN MEDOXOMIL) [Concomitant]
  4. ATENOL(ATENOLOL) [Concomitant]
  5. FLANTADIN [Suspect]
     Indication: ARTHRALGIA
     Dates: start: 20131210, end: 20131218
  6. FLUOXETINE [Suspect]
     Indication: DEPRESSION
     Route: 048
  7. CYCLOBENZAPRINE HYDROCHLORIDE [Suspect]
     Indication: DEPRESSION
     Route: 048
  8. CILOSTAZOL(CILOSTAZOL) [Concomitant]

REACTIONS (4)
  - Chorea [None]
  - Drug interaction [None]
  - Renal failure acute [None]
  - Rhabdomyolysis [None]
